FAERS Safety Report 7776833-0 (Version None)
Quarter: 2011Q3

REPORT INFORMATION
  Report Type: 
  Country: None (occurrence: None)
  Receive Date: 20110926
  Receipt Date: 20110914
  Transmission Date: 20111222
  Serious: Yes (Hospitalization, Other)
  Sender: FDA-Public Use
  Company Number: US-CELGENEUS-163-20785-11042969

PATIENT
  Sex: Female

DRUGS (9)
  1. ARIMIDEX [Concomitant]
     Dosage: 1 TABLET
     Route: 048
     Dates: start: 20050101
  2. LISINOPRIL [Concomitant]
     Indication: HYPERTENSION
     Dosage: 5 MILLIGRAM
     Route: 048
     Dates: start: 20100329
  3. TOPAMAX [Concomitant]
     Route: 065
  4. VICODIN [Concomitant]
     Route: 065
  5. ZOMETA [Concomitant]
     Route: 065
  6. DEXAMETHASONE [Concomitant]
     Indication: MULTIPLE MYELOMA
     Dosage: 40 MILLIGRAM
     Route: 048
  7. THALOMID [Suspect]
     Indication: MULTIPLE MYELOMA
     Dosage: 200 MILLIGRAM
     Route: 048
     Dates: start: 20110213, end: 20110227
  8. SIMVASTATIN [Concomitant]
     Route: 065
  9. SYNTHROID [Concomitant]
     Route: 065

REACTIONS (4)
  - HEADACHE [None]
  - ASTHENIA [None]
  - HYPERTENSION [None]
  - CEREBRAL HAEMORRHAGE [None]
